FAERS Safety Report 13801356 (Version 1)
Quarter: 2017Q3

REPORT INFORMATION
  Report Type: Spontaneous
  Country: US (occurrence: US)
  Receive Date: 20170727
  Receipt Date: 20170727
  Transmission Date: 20171127
  Serious: No
  Sender: FDA-Public Use
  Company Number: US-009507513-1707USA010535

PATIENT
  Age: 70 Year

DRUGS (6)
  1. ZEPATIER [Suspect]
     Active Substance: ELBASVIR\GRAZOPREVIR
     Indication: HEPATITIS C
     Dosage: 50-100MG, 1 TABLET EVERY DAY
     Route: 048
     Dates: start: 201707
  2. CHOLECALCIFEROL [Concomitant]
     Active Substance: CHOLECALCIFEROL
  3. RADICAL OMEGA 3-6-9 [Concomitant]
  4. MILK THISTLE [Concomitant]
     Active Substance: MILK THISTLE
  5. UBIDECARENONE [Concomitant]
     Active Substance: UBIDECARENONE
  6. ASCORBIC ACID. [Concomitant]
     Active Substance: ASCORBIC ACID

REACTIONS (1)
  - Fatigue [Unknown]

NARRATIVE: CASE EVENT DATE: 201707
